FAERS Safety Report 14149136 (Version 1)
Quarter: 2017Q4

REPORT INFORMATION
  Report Type: Report from Study
  Country: None (occurrence: BE)
  Receive Date: 20171101
  Receipt Date: 20171101
  Transmission Date: 20180321
  Serious: Yes (Other)
  Sender: FDA-Public Use
  Company Number: BE-ABBVIE-17K-013-2145792-00

PATIENT
  Sex: Male

DRUGS (4)
  1. DUODOPA [Suspect]
     Active Substance: CARBIDOPA\LEVODOPA
     Indication: PARKINSON^S DISEASE
     Route: 050
     Dates: start: 20170703, end: 20170706
  2. PANTOMED (PANTOPRAZOLE SODIUM) [Concomitant]
     Active Substance: PANTOPRAZOLE SODIUM
     Indication: PRODUCT USED FOR UNKNOWN INDICATION
  3. PRADAXA [Concomitant]
     Active Substance: DABIGATRAN ETEXILATE MESYLATE
     Indication: PRODUCT USED FOR UNKNOWN INDICATION
  4. DUODOPA [Suspect]
     Active Substance: CARBIDOPA\LEVODOPA
     Dosage: MD=7ML??CD=2.5ML/HR DURING 16HRS ??EDA=1ML
     Route: 050
     Dates: start: 20170706, end: 20170707

REACTIONS (1)
  - Neoplasm prostate [Unknown]

NARRATIVE: CASE EVENT DATE: 2017
